FAERS Safety Report 14242949 (Version 1)
Quarter: 2017Q4

REPORT INFORMATION
  Report Type: Spontaneous
  Country: US (occurrence: None)
  Receive Date: 20171130
  Receipt Date: 20171130
  Transmission Date: 20180321
  Serious: No
  Sender: FDA-Public Use
  Company Number: None

PATIENT
  Age: 57 Year
  Sex: Female

DRUGS (1)
  1. IBRANCE [Suspect]
     Active Substance: PALBOCICLIB
     Indication: BREAST CANCER
     Route: 048
     Dates: start: 20170504

REACTIONS (4)
  - Respiratory tract congestion [None]
  - Cough [None]
  - Nasopharyngitis [None]
  - Malaise [None]

NARRATIVE: CASE EVENT DATE: 20171129
